FAERS Safety Report 13737541 (Version 1)
Quarter: 2017Q3

REPORT INFORMATION
  Report Type: Report from Study
  Country: US (occurrence: US)
  Receive Date: 20170710
  Receipt Date: 20170710
  Transmission Date: 20171127
  Serious: No
  Sender: FDA-Public Use
  Company Number: US-AMGEN-USASL2017100776

PATIENT
  Age: 57 Year
  Sex: Female

DRUGS (1)
  1. ENBREL [Suspect]
     Active Substance: ETANERCEPT
     Indication: RHEUMATOID ARTHRITIS
     Dosage: 50 MG, QWK
     Route: 065

REACTIONS (8)
  - Miliaria [Unknown]
  - Hepatic steatosis [Not Recovered/Not Resolved]
  - Peripheral swelling [Recovering/Resolving]
  - Blood glucose increased [Recovering/Resolving]
  - Blood iron increased [Unknown]
  - Arthralgia [Recovering/Resolving]
  - Musculoskeletal disorder [Unknown]
  - Renal cyst [Unknown]

NARRATIVE: CASE EVENT DATE: 2017
